FAERS Safety Report 14786502 (Version 1)
Quarter: 2018Q2

REPORT INFORMATION
  Report Type: Spontaneous
  Country: US (occurrence: US)
  Receive Date: 20180420
  Receipt Date: 20180420
  Transmission Date: 20180711
  Serious: Yes (Death)
  Sender: FDA-Public Use
  Company Number: US-CELGENEUS-USA-20180406333

PATIENT
  Age: 62 Year
  Sex: Female

DRUGS (2)
  1. REVLIMID [Suspect]
     Active Substance: LENALIDOMIDE
     Indication: BREAST CANCER FEMALE
     Dosage: 25 MILLIGRAM
     Route: 048
     Dates: start: 20180307
  2. REVLIMID [Suspect]
     Active Substance: LENALIDOMIDE
     Indication: BREAST CANCER FEMALE

REACTIONS (1)
  - Death [Fatal]

NARRATIVE: CASE EVENT DATE: 20180402
